FAERS Safety Report 10472395 (Version 3)
Quarter: 2014Q4

REPORT INFORMATION
  Report Type: Report from Study
  Country: HN (occurrence: HN)
  Receive Date: 20140924
  Receipt Date: 20141009
  Transmission Date: 20150528
  Serious: Yes (Death, Hospitalization, Other)
  Sender: FDA-Public Use
  Company Number: PHHY2014HN121698

PATIENT
  Age: 29 Year
  Sex: Female
  Weight: 54.5 kg

DRUGS (2)
  1. GLIVEC [Suspect]
     Active Substance: IMATINIB MESYLATE
     Dosage: 800 MG, QD
     Route: 048
     Dates: end: 201405
  2. GLIVEC [Suspect]
     Active Substance: IMATINIB MESYLATE
     Indication: CHRONIC MYELOID LEUKAEMIA
     Dosage: 400 MG, BID
     Route: 065
     Dates: start: 200703

REACTIONS (5)
  - Limb injury [Fatal]
  - Dyspnoea [Fatal]
  - Thrombosis [Fatal]
  - Lower limb fracture [Fatal]
  - Fall [Fatal]

NARRATIVE: CASE EVENT DATE: 201404
